FAERS Safety Report 10043195 (Version 1)
Quarter: 2014Q1

REPORT INFORMATION
  Report Type: Spontaneous
  Country: US (occurrence: None)
  Receive Date: 20140327
  Receipt Date: 20140327
  Transmission Date: 20141002
  Serious: Yes (Disabling)
  Sender: FDA-Public Use
  Company Number: None

PATIENT
  Age: 46 Year
  Sex: Female
  Weight: 136.08 kg

DRUGS (1)
  1. RISPERDAL [Suspect]
     Indication: PSYCHIATRIC EVALUATION
     Route: 048
     Dates: start: 20040101, end: 20130306

REACTIONS (6)
  - Abnormal dreams [None]
  - Anger [None]
  - Frustration [None]
  - Paranoia [None]
  - Abnormal behaviour [None]
  - Aggression [None]
